FAERS Safety Report 5142629-1 (Version None)
Quarter: 2006Q4

REPORT INFORMATION
  Report Type: 
  Country: None (occurrence: None)
  Receive Date: 20061102
  Receipt Date: 20061024
  Transmission Date: 20070319
  Serious: Yes (Death)
  Sender: FDA-Public Use
  Company Number: TH-BOEHRINGER INGELHEIM PHARMACEUTICALS, INC.-2006-DE-05600GD

PATIENT

DRUGS (2)
  1. TRIOMUNE [Suspect]
     Indication: HIV INFECTION
     Dosage: FIXED DOSE COMBINATION OF NVP 200 MG, D4T 30 MG OR 40 MG IF WEIGHT }60 KG, AND 3TC 150 MG IN THE MOR
     Route: 048
  2. TRIOMUNE [Suspect]
     Dosage: FIXED DOSE COMBINATION OF NVP 200 MG, D4T 30 MG OR 40 MG IF WEIGHT }60 KG, AND 3TC 150 MG TWICE DAIL
     Route: 048

REACTIONS (1)
  - DIARRHOEA [None]
